FAERS Safety Report 10749362 (Version 1)
Quarter: 2015Q1

REPORT INFORMATION
  Report Type: Spontaneous
  Country: US (occurrence: US)
  Receive Date: 20150129
  Receipt Date: 20150129
  Transmission Date: 20150721
  Serious: Yes (Other)
  Sender: FDA-Public Use
  Company Number: US-GLAXOSMITHKLINE-US2014GSK048597

PATIENT
  Sex: Female

DRUGS (4)
  1. BENZOYL PEROXIDE + CLINDAMYCIN PHOSPHATE [Suspect]
     Active Substance: BENZOYL PEROXIDE\CLINDAMYCIN PHOSPHATE
     Indication: FURUNCLE
  2. BENZOYL PEROXIDE + CLINDAMYCIN PHOSPHATE [Suspect]
     Active Substance: BENZOYL PEROXIDE\CLINDAMYCIN PHOSPHATE
     Indication: SKIN LESION
  3. DUAC [Suspect]
     Active Substance: BENZOYL PEROXIDE\CLINDAMYCIN PHOSPHATE
     Indication: SKIN LESION
     Dosage: 45 G, U
  4. DUAC [Suspect]
     Active Substance: BENZOYL PEROXIDE\CLINDAMYCIN PHOSPHATE
     Indication: FURUNCLE

REACTIONS (4)
  - Hysterectomy [Unknown]
  - Drug ineffective [Unknown]
  - Skin lesion [Unknown]
  - Breast cancer [Unknown]
